FAERS Safety Report 4408416-4 (Version None)
Quarter: 2004Q3

REPORT INFORMATION
  Report Type: 
  Country: None (occurrence: None)
  Receive Date: 20040726
  Receipt Date: 20040726
  Transmission Date: 20050211
  Serious: No
  Sender: FDA-Public Use
  Company Number: None

PATIENT
  Sex: Male

DRUGS (1)
  1. OPTIPRANOLOL [Suspect]
     Indication: GLAUCOMA
     Dosage: ONE BID

REACTIONS (2)
  - CONJUNCTIVITIS ALLERGIC [None]
  - DERMATITIS CONTACT [None]
